FAERS Safety Report 9345004 (Version 1)
Quarter: 2013Q2

REPORT INFORMATION
  Report Type: Spontaneous
  Country: PT (occurrence: PT)
  Receive Date: 20130612
  Receipt Date: 20130612
  Transmission Date: 20140414
  Serious: Yes (Other)
  Sender: FDA-Public Use
  Company Number: PT-US-EMD SERONO, INC.-E2B_7178785

PATIENT
  Age: 40 Year
  Sex: Female
  Weight: 60 kg

DRUGS (3)
  1. REBIF [Suspect]
     Indication: MULTIPLE SCLEROSIS
     Route: 058
     Dates: start: 20120530
  2. REBIF [Suspect]
     Route: 058
     Dates: start: 201110, end: 201205
  3. REBIF [Suspect]
     Route: 058

REACTIONS (2)
  - Application site inflammation [Recovered/Resolved]
  - Injection site necrosis [Recovered/Resolved]
